FAERS Safety Report 4380489-7 (Version None)
Quarter: 2004Q2

REPORT INFORMATION
  Report Type: 
  Country: None (occurrence: None)
  Receive Date: 20040618
  Receipt Date: 20040609
  Transmission Date: 20050107
  Serious: Yes (Hospitalization)
  Sender: FDA-Public Use
  Company Number: GB-JNJFOC-20040602480

PATIENT
  Sex: Female

DRUGS (6)
  1. REMICADE [Suspect]
     Indication: RHEUMATOID ARTHRITIS
     Dosage: 120MG - 117MG
     Route: 042
  2. VIOXX [Concomitant]
  3. CO-PROXAMOL [Concomitant]
  4. CO-PROXAMOL [Concomitant]
  5. FOLIC ACID [Concomitant]
  6. LANSOPRAZOLE [Concomitant]

REACTIONS (2)
  - PERIPHERAL ISCHAEMIA [None]
  - RAYNAUD'S PHENOMENON [None]
